FAERS Safety Report 20331539 (Version 2)
Quarter: 2022Q1

REPORT INFORMATION
  Report Type: Spontaneous
  Country: IT (occurrence: IT)
  Receive Date: 20220113
  Receipt Date: 20220305
  Transmission Date: 20220423
  Serious: Yes (Other)
  Sender: FDA-Public Use
  Company Number: None

PATIENT
  Age: 75 Year
  Sex: Female

DRUGS (2)
  1. VALSARTAN [Suspect]
     Active Substance: VALSARTAN
     Indication: Hypertension
     Dosage: 160 MG, QD
     Route: 048
  2. MANIDIPINE [Suspect]
     Active Substance: MANIDIPINE
     Indication: Hypertension
     Dosage: 20 MG, QD
     Route: 048

REACTIONS (5)
  - Hemiplegia [Recovered/Resolved]
  - Hypersensitivity [Unknown]
  - Anaphylactic reaction [Unknown]
  - Hypotension [Recovered/Resolved]
  - Hypotension [Unknown]

NARRATIVE: CASE EVENT DATE: 20211210
